FAERS Safety Report 7171530 (Version 3)
Quarter: 2014Q2

REPORT INFORMATION
  Report Type: Report from Study
  Country: US (occurrence: US)
  Receive Date: 20091110
  Receipt Date: 20140513
  Transmission Date: 20141212
  Serious: Yes (Hospitalization)
  Sender: FDA-Public Use
  Company Number: US-BIOGENIDEC-2009BI035500

PATIENT
  Age: 61 Year
  Sex: Female

DRUGS (3)
  1. AVONEX [Suspect]
     Indication: MULTIPLE SCLEROSIS
     Route: 030
     Dates: start: 19960801
  2. AVONEX [Suspect]
     Indication: MULTIPLE SCLEROSIS
     Route: 030
     Dates: start: 199809, end: 200309
  3. AVONEX [Suspect]
     Indication: MULTIPLE SCLEROSIS
     Route: 030
     Dates: start: 200309

REACTIONS (8)
  - Mania [Not Recovered/Not Resolved]
  - Joint dislocation [Recovered/Resolved]
  - Fall [Recovered/Resolved]
  - Arthralgia [Recovered/Resolved]
  - Skin ulcer [Not Recovered/Not Resolved]
  - Laceration [Recovered/Resolved]
  - Ear congestion [Not Recovered/Not Resolved]
  - Balance disorder [Not Recovered/Not Resolved]
